FAERS Safety Report 22006418 (Version 1)
Quarter: 2023Q1

REPORT INFORMATION
  Report Type: Spontaneous
  Country: US (occurrence: None)
  Receive Date: 20230216
  Receipt Date: 20230216
  Transmission Date: 20230418
  Serious: Yes (Death)
  Sender: FDA-Public Use
  Company Number: None

PATIENT
  Age: 62 Year
  Sex: Female

DRUGS (1)
  1. ENBREL [Suspect]
     Active Substance: ETANERCEPT
     Indication: Rheumatoid arthritis
     Dosage: OTHER FREQUENCY : EVERY7DAYS;?
     Route: 058
     Dates: start: 202109

REACTIONS (1)
  - Amyotrophic lateral sclerosis [None]

NARRATIVE: CASE EVENT DATE: 20230214
